FAERS Safety Report 7376488-3 (Version None)
Quarter: 2011Q1

REPORT INFORMATION
  Report Type: 
  Country: None (occurrence: None)
  Receive Date: 20110325
  Receipt Date: 20110314
  Transmission Date: 20110831
  Serious: Yes (Hospitalization)
  Sender: FDA-Public Use
  Company Number: PHHO2009FR07787

PATIENT
  Sex: Female
  Weight: 49 kg

DRUGS (2)
  1. AFINITOR [Suspect]
     Indication: RENAL CELL CARCINOMA
     Dosage: 10 MG
     Route: 048
     Dates: start: 20090408, end: 20090722
  2. AVASTIN [Suspect]
     Indication: RENAL CELL CARCINOMA
     Dosage: UNK
     Route: 048
     Dates: start: 20090407, end: 20090722

REACTIONS (4)
  - PULMONARY OEDEMA [None]
  - MYOCARDIAL INFARCTION [None]
  - CARDIAC FAILURE ACUTE [None]
  - HYPERTENSION [None]
